FAERS Safety Report 8583933-4 (Version None)
Quarter: 2012Q3

REPORT INFORMATION
  Report Type: 
  Country: None (occurrence: None)
  Receive Date: 20120810
  Receipt Date: 20120803
  Transmission Date: 20120928
  Serious: Yes (Hospitalization, Other)
  Sender: FDA-Public Use
  Company Number: US-009507513-0605USA03990

PATIENT

DRUGS (5)
  1. FOSAMAX [Suspect]
     Indication: OSTEOPOROSIS
     Dosage: 70 MG, QW
     Route: 048
     Dates: start: 20020311, end: 20060516
  2. FOSAMAX [Suspect]
     Indication: BONE MARROW OEDEMA SYNDROME
     Dosage: UNK UNK, QD
  3. THERAPY UNSPECIFIED [Concomitant]
     Indication: RHEUMATOID ARTHRITIS
     Dates: start: 20010606
  4. PRAVACHOL [Concomitant]
     Dates: start: 20011031
  5. MAXZIDE [Concomitant]
     Dates: start: 20010317

REACTIONS (25)
  - OSTEONECROSIS OF JAW [None]
  - CONSTIPATION [None]
  - HYPERLIPIDAEMIA [None]
  - FACIAL PAIN [None]
  - FATIGUE [None]
  - DERMATITIS ALLERGIC [None]
  - OSTEOMYELITIS [None]
  - MALAISE [None]
  - TOOTHACHE [None]
  - EAR PAIN [None]
  - ABSCESS NECK [None]
  - PAIN IN EXTREMITY [None]
  - DYSLIPIDAEMIA [None]
  - RASH [None]
  - NEUROPATHY PERIPHERAL [None]
  - OEDEMA PERIPHERAL [None]
  - BONE LOSS [None]
  - HYPERGLYCAEMIA [None]
  - GASTROINTESTINAL DISORDER [None]
  - CELLULITIS [None]
  - ORAL DISORDER [None]
  - CORONARY ARTERY DISEASE [None]
  - ADVERSE DRUG REACTION [None]
  - HAEMORRHOIDS [None]
  - CATARACT [None]
